FAERS Safety Report 21715859 (Version 2)
Quarter: 2023Q1

REPORT INFORMATION
  Report Type: Report from Study
  Country: CN (occurrence: CN)
  Receive Date: 20221212
  Receipt Date: 20230111
  Transmission Date: 20230418
  Serious: Yes (Other)
  Sender: FDA-Public Use
  Company Number: CN-BRISTOL-MYERS SQUIBB COMPANY-2022-142551

PATIENT
  Age: 68 Year
  Sex: Female
  Weight: 49 kg

DRUGS (2)
  1. AZACITIDINE [Suspect]
     Active Substance: AZACITIDINE
     Indication: Acute myeloid leukaemia
     Dosage: ONCE A DAY (QD)
     Route: 041
     Dates: start: 20190510, end: 20190515
  2. AZACITIDINE [Suspect]
     Active Substance: AZACITIDINE
     Route: 041
     Dates: start: 20191228

REACTIONS (14)
  - Cellulitis [Recovered/Resolved]
  - Rash [Unknown]
  - Pruritus [Unknown]
  - Pain [Unknown]
  - Swelling [Unknown]
  - Prescribed underdose [Unknown]
  - Pyrexia [Recovered/Resolved]
  - Pneumonia [Recovering/Resolving]
  - Vomiting [Recovered/Resolved]
  - Myelosuppression [Recovered/Resolved]
  - Abdominal infection [Recovering/Resolving]
  - Diarrhoea [Recovering/Resolving]
  - Hyponatraemia [Recovering/Resolving]
  - Thrombocytopenia [Recovering/Resolving]

NARRATIVE: CASE EVENT DATE: 20190515
